FAERS Safety Report 21281304 (Version 2)
Quarter: 2022Q4

REPORT INFORMATION
  Report Type: Spontaneous
  Country: US (occurrence: US)
  Receive Date: 20220901
  Receipt Date: 20221130
  Transmission Date: 20230112
  Serious: No
  Sender: FDA-Public Use
  Company Number: US-KYOWAKIRIN-2022BKK013675

PATIENT

DRUGS (2)
  1. SANCUSO [Suspect]
     Active Substance: GRANISETRON
     Indication: Nausea
     Dosage: UNK
     Route: 061
     Dates: start: 2022
  2. SANCUSO [Suspect]
     Active Substance: GRANISETRON
     Indication: Impaired gastric emptying
     Dosage: UNK APPLY PATCH, LEAVE ON FOR 7 DAYS
     Route: 061
     Dates: start: 202205

REACTIONS (3)
  - Off label use [Unknown]
  - Product adhesion issue [Unknown]
  - Product dose omission issue [Unknown]

NARRATIVE: CASE EVENT DATE: 20220101
